FAERS Safety Report 25601815 (Version 1)
Quarter: 2025Q3

REPORT INFORMATION
  Report Type: Spontaneous
  Country: US (occurrence: US)
  Receive Date: 20250724
  Receipt Date: 20250724
  Transmission Date: 20251021
  Serious: No
  Sender: PFIZER
  Company Number: US-PFIZER INC-202500147443

PATIENT
  Age: 41 Year
  Sex: Female

DRUGS (2)
  1. TUKYSA [Suspect]
     Active Substance: TUCATINIB
     Dosage: TWO 150MG TABLETS ORALLY TWICE DAILY
     Route: 048
     Dates: start: 20210426
  2. CAPECITABINE [Concomitant]
     Active Substance: CAPECITABINE

REACTIONS (8)
  - Oedema [Unknown]
  - Abdominal pain [Unknown]
  - Constipation [Recovering/Resolving]
  - Menstruation irregular [Recovered/Resolved]
  - Central nervous system lesion [Recovering/Resolving]
  - Ejection fraction decreased [Unknown]
  - Bone disorder [Unknown]
  - Off label use [Unknown]

NARRATIVE: CASE EVENT DATE: 20210401
